FAERS Safety Report 7034016-6 (Version None)
Quarter: 2010Q4

REPORT INFORMATION
  Report Type: 
  Country: None (occurrence: None)
  Receive Date: 20101007
  Receipt Date: 20101001
  Transmission Date: 20110411
  Serious: Yes (Death, Hospitalization, Other)
  Sender: FDA-Public Use
  Company Number: PHHY2010IE52427

PATIENT
  Sex: Female

DRUGS (3)
  1. DIOVAN HCT [Suspect]
     Indication: BLOOD PRESSURE INCREASED
     Dosage: 160/12.5 UNK, UNK
  2. IDEOS [Concomitant]
     Indication: VITAMIN D
  3. ONE-ALPHA [Concomitant]

REACTIONS (16)
  - ASTHENIA [None]
  - ATELECTASIS [None]
  - BLOOD CHLORIDE DECREASED [None]
  - BLOOD CREATININE INCREASED [None]
  - DECREASED APPETITE [None]
  - HYPERTENSION [None]
  - HYPONATRAEMIA [None]
  - HYPOTENSION [None]
  - INAPPROPRIATE ANTIDIURETIC HORMONE SECRETION [None]
  - KYPHOSCOLIOSIS [None]
  - LETHARGY [None]
  - NEUTROPHIL COUNT INCREASED [None]
  - PLATELET DISORDER [None]
  - RESPIRATORY FAILURE [None]
  - VOCAL CORD PARALYSIS [None]
  - WHITE BLOOD CELL COUNT INCREASED [None]
